FAERS Safety Report 8489473-5 (Version None)
Quarter: 2012Q3

REPORT INFORMATION
  Report Type: 
  Country: None (occurrence: None)
  Receive Date: 20120705
  Receipt Date: 20120628
  Transmission Date: 20120928
  Serious: Yes (Other)
  Sender: FDA-Public Use
  Company Number: US-JNJFOC-20120700791

PATIENT
  Age: 29 Year
  Sex: Male
  Weight: 76.2 kg

DRUGS (3)
  1. ZYRTEC [Suspect]
     Route: 048
  2. ZYRTEC [Suspect]
     Indication: MULTIPLE ALLERGIES
     Dosage: ONLY 2 TIMES, ABOUT 2-4 HOURS APRT
     Route: 048
     Dates: start: 20120624, end: 20120624
  3. AN UNKNOWN MEDICATION [Concomitant]
     Indication: PRODUCT USED FOR UNKNOWN INDICATION
     Route: 065

REACTIONS (2)
  - ANAPHYLACTIC SHOCK [None]
  - OVERDOSE [None]
